FAERS Safety Report 11789000 (Version 5)
Quarter: 2015Q4

REPORT INFORMATION
  Report Type: Spontaneous
  Country: CO (occurrence: CO)
  Receive Date: 20151201
  Receipt Date: 20151230
  Transmission Date: 20160305
  Serious: Yes (Life-Threatening, Hospitalization)
  Sender: FDA-Public Use
  Company Number: PHHY2015CO156735

PATIENT
  Age: 28 Year
  Sex: Male

DRUGS (2)
  1. FAMPRIDINE [Concomitant]
     Active Substance: DALFAMPRIDINE
     Indication: PRODUCT USED FOR UNKNOWN INDICATION
     Dosage: 10 MG, UNK
     Route: 065
  2. GILENYA [Suspect]
     Active Substance: FINGOLIMOD HYDROCHLORIDE
     Indication: RELAPSING-REMITTING MULTIPLE SCLEROSIS
     Dosage: 0.5 MG, QD
     Route: 048
     Dates: start: 201505

REACTIONS (4)
  - Movement disorder [Recovering/Resolving]
  - Ataxia [Recovering/Resolving]
  - Central nervous system lesion [Recovering/Resolving]
  - Rebound effect [Unknown]

NARRATIVE: CASE EVENT DATE: 20151115
